FAERS Safety Report 8279271-X (Version None)
Quarter: 2012Q2

REPORT INFORMATION
  Report Type: 
  Country: None (occurrence: None)
  Receive Date: 20120412
  Receipt Date: 20120404
  Transmission Date: 20120825
  Serious: Yes (Other)
  Sender: FDA-Public Use
  Company Number: US-BAYER-2012-033494

PATIENT
  Age: 52 Year
  Sex: Female
  Weight: 54 kg

DRUGS (5)
  1. CALCIUM CARBONATE [Concomitant]
  2. VITAMIN D [Concomitant]
  3. VITAMIN B COMPLEX CAP [Concomitant]
  4. ALEVE (CAPLET) [Suspect]
     Indication: ANALGESIC THERAPY
     Dosage: UNK UNK, QD
     Route: 048
     Dates: start: 20120201, end: 20120402
  5. MULTI-VITAMIN [Concomitant]

REACTIONS (7)
  - HYPERSENSITIVITY [None]
  - URTICARIA [None]
  - ERYTHEMA [None]
  - EYE SWELLING [None]
  - PRURITUS [None]
  - SWELLING FACE [None]
  - RASH MACULAR [None]
